FAERS Safety Report 6027320-1 (Version None)
Quarter: 2009Q1

REPORT INFORMATION
  Report Type: 
  Country: None (occurrence: None)
  Receive Date: 20090105
  Receipt Date: 20081229
  Transmission Date: 20090719
  Serious: Yes (Other)
  Sender: FDA-Public Use
  Company Number: B0525717A

PATIENT
  Age: 73 Year
  Sex: Female

DRUGS (5)
  1. ZEFIX [Suspect]
     Indication: HEPATITIS B
     Dosage: 100MG PER DAY
     Route: 048
     Dates: start: 20010424
  2. HEPSERA [Suspect]
     Route: 048
     Dates: start: 20080115
  3. ANPLAG [Suspect]
     Route: 048
  4. DOGMATYL [Concomitant]
     Route: 065
  5. MEILAX [Concomitant]
     Route: 048

REACTIONS (3)
  - COLON NEOPLASM [None]
  - GASTRITIS [None]
  - HAEMOGLOBIN DECREASED [None]
